FAERS Safety Report 13427688 (Version 1)
Quarter: 2017Q2

REPORT INFORMATION
  Report Type: Spontaneous
  Country: US (occurrence: US)
  Receive Date: 20170411
  Receipt Date: 20170411
  Transmission Date: 20170830
  Serious: Yes (Other)
  Sender: FDA-Public Use
  Company Number: US-SUPERNUS PHARMACEUTICALS, INC.-2017SUP00072

PATIENT
  Age: 53 Year
  Sex: Female
  Weight: 54.88 kg

DRUGS (7)
  1. TROKENDI XR [Suspect]
     Active Substance: TOPIRAMATE
     Indication: MIGRAINE
     Dosage: 50 MG, 1X/DAY
     Route: 048
     Dates: start: 20160430, end: 20160506
  2. TROKENDI XR [Suspect]
     Active Substance: TOPIRAMATE
     Dosage: 25 MG, 1X/DAY INITIALLY STARTED ON 25 MG OF THE PRODUCT
     Route: 048
     Dates: start: 20160423, end: 20160429
  3. TROKENDI XR [Suspect]
     Active Substance: TOPIRAMATE
     Dosage: 75 MG, 1X/DAY
     Route: 048
     Dates: start: 20160507, end: 20160513
  4. TROKENDI XR [Suspect]
     Active Substance: TOPIRAMATE
     Dosage: 75 MG, 1X/DAY SHE TOOK 75 MG FOR A BIT AND THEN GOT BACK DOWN TO 50 MG
     Route: 048
  5. TROKENDI XR [Suspect]
     Active Substance: TOPIRAMATE
     Dosage: 50 MG, 1X/DAY
  6. UNSPECIFIED SUPPLEMENTS [Concomitant]
  7. TROKENDI XR [Suspect]
     Active Substance: TOPIRAMATE
     Dosage: 100 MG, 1X/DAY INCREASED DOES UNTIL SHE REACHED 100 MG
     Route: 048
     Dates: start: 20160514

REACTIONS (12)
  - Tongue discomfort [Unknown]
  - Psychotic disorder [Unknown]
  - Off label use [None]
  - Candida infection [Unknown]
  - Anxiety [Unknown]
  - Emotional disorder [Not Recovered/Not Resolved]
  - Decreased appetite [Unknown]
  - Stress [Unknown]
  - Dermatitis [Unknown]
  - Fear [Unknown]
  - Depressed mood [Not Recovered/Not Resolved]
  - Gastrooesophageal reflux disease [Unknown]

NARRATIVE: CASE EVENT DATE: 201605
